FAERS Safety Report 22348971 (Version 2)
Quarter: 2023Q2

REPORT INFORMATION
  Report Type: Spontaneous
  Country: CA (occurrence: CA)
  Receive Date: 20230522
  Receipt Date: 20230524
  Transmission Date: 20230721
  Serious: Yes (Other)
  Sender: FDA-Public Use
  Company Number: CA-002147023-NVSC2023CA112886

PATIENT
  Age: 23 Year
  Sex: Female

DRUGS (2)
  1. ADALIMUMAB [Suspect]
     Active Substance: ADALIMUMAB
     Indication: Colitis ulcerative
     Dosage: 40 MG, Q2W (1 EVERY 2 WEEKS)
     Route: 065
  2. MESALAMINE [Concomitant]
     Active Substance: MESALAMINE
     Indication: Product used for unknown indication
     Dosage: 4.8 G, QD ALSO KNOWN AS MESALAMINE (DELAYED AND EXTENDED RELEASE)
     Route: 065

REACTIONS (1)
  - Appendicitis [Not Recovered/Not Resolved]
